FAERS Safety Report 18387492 (Version 1)
Quarter: 2020Q4

REPORT INFORMATION
  Report Type: Spontaneous
  Country: US (occurrence: US)
  Receive Date: 20201015
  Receipt Date: 20201015
  Transmission Date: 20210114
  Serious: Yes (Hospitalization, Other)
  Sender: FDA-Public Use
  Company Number: US-JAZZ-2020-US-013432

PATIENT
  Age: 11 Year
  Sex: Male

DRUGS (22)
  1. CEFIXIME. [Concomitant]
     Active Substance: CEFIXIME
     Indication: ANTIBIOTIC PROPHYLAXIS
     Dosage: 400 MILLIGRAM, QD
     Dates: start: 20200724, end: 20200822
  2. VENETOCLAX. [Suspect]
     Active Substance: VENETOCLAX
     Dosage: 800 MILLIGRAM, QD
     Route: 048
     Dates: start: 20200726, end: 20200726
  3. PREDNISONE. [Suspect]
     Active Substance: PREDNISONE
     Indication: ACUTE LYMPHOCYTIC LEUKAEMIA
     Dosage: 50 MILLIGRAM, BID
     Route: 048
     Dates: start: 20200723, end: 20200810
  4. PREDNISONE. [Suspect]
     Active Substance: PREDNISONE
     Dosage: 50 MILLIGRAM, BID
     Route: 048
     Dates: start: 20200814, end: 20200818
  5. MICAFUNGIN SODIUM [Concomitant]
     Active Substance: MICAFUNGIN SODIUM
     Indication: PROPHYLAXIS
     Route: 042
  6. METHOTREXATE. [Concomitant]
     Active Substance: METHOTREXATE
     Indication: CHEMOTHERAPY
     Dosage: 12 MILLIGRAM, QD
     Route: 037
     Dates: start: 20200716, end: 20200716
  7. VENETOCLAX. [Suspect]
     Active Substance: VENETOCLAX
     Dosage: 400 MILLIGRAM, QD
     Route: 048
     Dates: start: 20200721, end: 20200721
  8. VENETOCLAX. [Suspect]
     Active Substance: VENETOCLAX
     Dosage: 800 MILLIGRAM, QD
     Route: 048
     Dates: start: 20200722, end: 20200722
  9. PREDNISONE. [Suspect]
     Active Substance: PREDNISONE
     Dosage: 50 MILLIGRAM, QD
     Route: 048
     Dates: start: 20200811, end: 20200813
  10. VENETOCLAX. [Suspect]
     Active Substance: VENETOCLAX
     Indication: ACUTE LYMPHOCYTIC LEUKAEMIA
     Dosage: 200 MILLIGRAM, QD
     Route: 048
     Dates: start: 20200716, end: 20200716
  11. MIDAZOLAM. [Concomitant]
     Active Substance: MIDAZOLAM
     Indication: NEUROLOGICAL EXAMINATION
     Dosage: UNK
     Route: 042
     Dates: start: 20200720
  12. OMEPRAZOLE. [Concomitant]
     Active Substance: OMEPRAZOLE
     Indication: ABDOMINAL DISCOMFORT
     Dosage: 20 MILLIGRAM, QD
     Route: 048
     Dates: start: 20200724
  13. HYDROCORTISONE. [Concomitant]
     Active Substance: HYDROCORTISONE
     Indication: CHEMOTHERAPY
     Dosage: 35 MILLIGRAM, QD
     Route: 037
     Dates: start: 20200716, end: 20200716
  14. VINCRISTINE [Suspect]
     Active Substance: VINCRISTINE
     Indication: ACUTE LYMPHOCYTIC LEUKAEMIA
     Dosage: 2 MG/SQUARE METER, ONCE IN WEEK
     Route: 042
     Dates: start: 20200723, end: 20200813
  15. SIMETHICONE (DIMETHICONE) [Concomitant]
     Active Substance: DIMETHICONE
     Indication: FLATULENCE
  16. ERWINAZE [Suspect]
     Active Substance: ASPARAGINASE ERWINIA CHRYSANTHEMI
     Indication: ACUTE LYMPHOCYTIC LEUKAEMIA
     Dosage: 2500 IU/M2, 1 IN 2 DYAS
     Route: 042
     Dates: start: 20200723, end: 20200803
  17. ONDANSETRON [Concomitant]
     Active Substance: ONDANSETRON
     Indication: VOMITING
  18. VENETOCLAX. [Suspect]
     Active Substance: VENETOCLAX
     Dosage: 400 MILLIGRAM, QD
     Route: 048
     Dates: start: 20200725, end: 20200725
  19. ONDANSETRON [Concomitant]
     Active Substance: ONDANSETRON
     Indication: NAUSEA
     Dosage: UNK
     Route: 042
     Dates: start: 20200717, end: 20200818
  20. SIMETHICONE (DIMETHICONE) [Concomitant]
     Active Substance: DIMETHICONE
     Indication: ABDOMINAL DISTENSION
     Dosage: 80 MILLIGRAM, PRN
     Route: 048
     Dates: start: 20200716
  21. PROTONIX [Concomitant]
     Active Substance: PANTOPRAZOLE SODIUM
     Indication: ABDOMINAL DISCOMFORT
     Dosage: 40 MILLIGRAM, QD
     Dates: start: 20200729
  22. CYTARABINE. [Concomitant]
     Active Substance: CYTARABINE
     Indication: CHEMOTHERAPY
     Dosage: 70 MILLIGRAM, QD
     Route: 037
     Dates: start: 20200716, end: 20200716

REACTIONS (1)
  - Febrile neutropenia [Recovered/Resolved]
